FAERS Safety Report 8902393 (Version 1)
Quarter: 2012Q4

REPORT INFORMATION
  Report Type: 
  Country: IT (occurrence: IT)
  Receive Date: 20121112
  Receipt Date: 20121112
  Transmission Date: 20130627
  Serious: Yes (Life-Threatening, Hospitalization)
  Sender: FDA-Public Use
  Company Number: IT-JNJFOC-20121016911

PATIENT
  Age: 19 Year
  Sex: Male

DRUGS (1)
  1. HALOPERIDOL [Suspect]
     Indication: ABNORMAL BEHAVIOUR
     Route: 065

REACTIONS (3)
  - Dystonia [Recovering/Resolving]
  - Dysphagia [Recovered/Resolved]
  - Pneumonia aspiration [Unknown]
